FAERS Safety Report 13496144 (Version 1)
Quarter: 2017Q2

REPORT INFORMATION
  Report Type: Spontaneous
  Country: JP (occurrence: JP)
  Receive Date: 20170428
  Receipt Date: 20170428
  Transmission Date: 20170830
  Serious: Yes (Life-Threatening, Other)
  Sender: FDA-Public Use
  Company Number: JP-BAYER-2017-020532

PATIENT
  Age: 21 Year
  Sex: Female
  Weight: 48 kg

DRUGS (3)
  1. LOXONIN [Concomitant]
     Active Substance: LOXOPROFEN SODIUM
     Indication: DYSMENORRHOEA
     Dosage: 180 MG, PRN
     Route: 048
     Dates: start: 20160916
  2. DUVADILAN [Concomitant]
     Active Substance: ISOXSUPRINE HYDROCHLORIDE
     Indication: DYSMENORRHOEA
     Dosage: 30 MG, PRN
     Route: 048
     Dates: start: 20160916
  3. YAZ [Suspect]
     Active Substance: DROSPIRENONE\ETHINYL ESTRADIOL
     Indication: DYSMENORRHOEA
     Dosage: UNK
     Route: 048
     Dates: start: 20161005, end: 20170131

REACTIONS (3)
  - Pulmonary embolism [Recovered/Resolved]
  - Venous thrombosis limb [Unknown]
  - Hypoaesthesia [None]

NARRATIVE: CASE EVENT DATE: 20161018
